FAERS Safety Report 23594546 (Version 1)
Quarter: 2024Q1

REPORT INFORMATION
  Report Type: Spontaneous
  Country: US (occurrence: US)
  Receive Date: 20240305
  Receipt Date: 20240305
  Transmission Date: 20240410
  Serious: No
  Sender: FDA-Public Use
  Company Number: US-AUROBINDO-AUR-APL-2023-058303

PATIENT
  Age: 45 Year
  Sex: Male
  Weight: 58.9 kg

DRUGS (1)
  1. LEVETIRACETAM [Suspect]
     Active Substance: LEVETIRACETAM
     Indication: Product used for unknown indication
     Dosage: UNK UNK, TWO TIMES A DAY ( IN THE MORNING AND AT BED TIME)
     Route: 065
     Dates: start: 202307

REACTIONS (4)
  - Abdominal pain upper [Unknown]
  - Abdominal discomfort [Unknown]
  - Bowel movement irregularity [Unknown]
  - Gastrointestinal disorder [Unknown]
